FAERS Safety Report 22362813 (Version 1)
Quarter: 2023Q2

REPORT INFORMATION
  Report Type: Spontaneous
  Country: IN (occurrence: IN)
  Receive Date: 20230524
  Receipt Date: 20230524
  Transmission Date: 20230722
  Serious: Yes (Hospitalization)
  Sender: FDA-Public Use
  Company Number: IN-STRIDES ARCOLAB LIMITED-2022SP016816

PATIENT
  Age: 6 Year
  Sex: Female

DRUGS (25)
  1. CYCLOSPORINE [Suspect]
     Active Substance: CYCLOSPORINE
     Indication: Prophylaxis against graft versus host disease
     Dosage: UNK (ON DAY 5)
     Route: 065
     Dates: start: 2020, end: 2020
  2. TACROLIMUS [Suspect]
     Active Substance: TACROLIMUS
     Indication: Graft versus host disease in liver
     Dosage: UNK (FROM DAY+217)
     Route: 065
  3. MYCOPHENOLATE MOFETIL [Suspect]
     Active Substance: MYCOPHENOLATE MOFETIL
     Indication: Prophylaxis against graft versus host disease
     Dosage: UNK (ON DAY+5)
     Route: 065
     Dates: start: 2020
  4. CYCLOPHOSPHAMIDE [Suspect]
     Active Substance: CYCLOPHOSPHAMIDE
     Indication: Prophylaxis against graft versus host disease
     Dosage: 14.5 MG/KG (FOR 2 DAYS (DAY 6 AND DAY -5))
     Route: 065
     Dates: start: 2020, end: 2020
  5. CYCLOPHOSPHAMIDE [Suspect]
     Active Substance: CYCLOPHOSPHAMIDE
     Indication: Immunosuppressant drug therapy
     Dosage: 50 MG/KG (DAY 3 AND DAY 4)
     Route: 065
     Dates: start: 2020
  6. CYCLOPHOSPHAMIDE [Suspect]
     Active Substance: CYCLOPHOSPHAMIDE
     Indication: Stem cell transplant
  7. LAPINE T-LYMPHOCYTE IMMUNE GLOBULIN [Suspect]
     Active Substance: LAPINE T-LYMPHOCYTE IMMUNE GLOBULIN
     Indication: Immunosuppressant drug therapy
     Dosage: 0.5 MG/KG (FOR 1 DAY)
     Route: 065
     Dates: start: 2020, end: 2020
  8. LAPINE T-LYMPHOCYTE IMMUNE GLOBULIN [Suspect]
     Active Substance: LAPINE T-LYMPHOCYTE IMMUNE GLOBULIN
     Indication: Stem cell transplant
     Dosage: 2 MG/KG (FOR 2 DAYS FROM DAY 9 TO DAY 7)
     Route: 065
     Dates: start: 2020, end: 2020
  9. FLUDARABINE [Suspect]
     Active Substance: FLUDARABINE PHOSPHATE
     Indication: Immunosuppressant drug therapy
     Dosage: 40 MG/M2 (FOR 4 DAYS (DAY 6 TO DAY 3))
     Route: 065
     Dates: start: 2020, end: 2020
  10. FLUDARABINE [Suspect]
     Active Substance: FLUDARABINE PHOSPHATE
     Indication: Stem cell transplant
  11. METHYLPREDNISOLONE [Suspect]
     Active Substance: METHYLPREDNISOLONE
     Indication: Haemophagocytic lymphohistiocytosis
     Dosage: 2 MG/KG, UNKNOWN
     Route: 042
     Dates: start: 2020
  12. METHYLPREDNISOLONE [Suspect]
     Active Substance: METHYLPREDNISOLONE
     Indication: Candida infection
     Dosage: UNK
     Route: 042
     Dates: start: 2020
  13. METHYLPREDNISOLONE [Suspect]
     Active Substance: METHYLPREDNISOLONE
     Indication: Graft versus host disease in gastrointestinal tract
     Dosage: UNK (GRADUALLY TAPERED FROM DAY+72)
     Route: 065
     Dates: start: 2020
  14. ALEMTUZUMAB [Suspect]
     Active Substance: ALEMTUZUMAB
     Indication: Haemophagocytic lymphohistiocytosis
     Dosage: 0.1 MG/KG, SINGLE (ONE DOSE OF IV ALEMTUZUMAB 0.1 MG/KG)
     Route: 042
     Dates: start: 2020, end: 2020
  15. ALEMTUZUMAB [Suspect]
     Active Substance: ALEMTUZUMAB
     Indication: Candida infection
  16. BUDESONIDE [Suspect]
     Active Substance: BUDESONIDE
     Indication: Graft versus host disease in gastrointestinal tract
     Dosage: UNK
     Route: 048
     Dates: start: 2020
  17. NARSOPLIMAB [Suspect]
     Active Substance: NARSOPLIMAB
     Indication: Thrombotic microangiopathy
     Dosage: 4 MG/KG, 2 TIMES A WEEK (ON DAY 30)
     Route: 065
     Dates: start: 2020
  18. NARSOPLIMAB [Suspect]
     Active Substance: NARSOPLIMAB
     Dosage: 4 MG/KG, THRICE  A WEEK (ON DAY+45 )
     Route: 065
     Dates: start: 2020
  19. NARSOPLIMAB [Suspect]
     Active Substance: NARSOPLIMAB
     Dosage: 4 MG/KG, 2 TIMES A WEEK (ON DAY+109)
     Route: 065
     Dates: start: 2020
  20. NARSOPLIMAB [Suspect]
     Active Substance: NARSOPLIMAB
     Dosage: 4 MG/KG, ONCE A WEEK (ON DAY+133; AND DISCONTINUED ON DAY+195)
     Route: 065
     Dates: start: 2020
  21. NARSOPLIMAB [Suspect]
     Active Substance: NARSOPLIMAB
     Dosage: UNK, 2 TIMES A WEEK (FROM DAY+254, INITIALLY TWICE A WEEK FOR 3 WEEKS)
     Route: 065
  22. NARSOPLIMAB [Suspect]
     Active Substance: NARSOPLIMAB
     Dosage: UNK, THRICE  A WEEK (ESCALATED TO THRICE A WEEK FROM DAY+274)
     Route: 065
  23. RUXOLITINIB [Suspect]
     Active Substance: RUXOLITINIB
     Indication: Graft versus host disease in liver
     Dosage: UNK (FROM DAY+237)
     Route: 065
  24. ETANERCEPT [Suspect]
     Active Substance: ETANERCEPT
     Indication: Thrombotic microangiopathy
     Dosage: UNK (TWO DOSES OF ETANERCEPT ON DAY+40 AND DAY+43)
     Route: 065
     Dates: start: 2020, end: 2020
  25. ETANERCEPT [Suspect]
     Active Substance: ETANERCEPT
     Indication: Graft versus host disease in gastrointestinal tract

REACTIONS (15)
  - Reticulocytopenia [Unknown]
  - Haematochezia [Not Recovered/Not Resolved]
  - Haemophagocytic lymphohistiocytosis [Unknown]
  - Thrombotic microangiopathy [Recovered/Resolved]
  - Hypertension [Recovered/Resolved]
  - Thrombocytopenia [Recovered/Resolved]
  - Gastrointestinal haemorrhage [Recovered/Resolved]
  - Herpes zoster [Recovered/Resolved]
  - Hepatosplenic candidiasis [Unknown]
  - Parvovirus infection [Unknown]
  - Candida infection [Unknown]
  - Skin infection [Recovered/Resolved]
  - Cytomegalovirus infection [Recovered/Resolved]
  - Graft versus host disease in gastrointestinal tract [Recovered/Resolved]
  - Graft versus host disease in liver [Recovered/Resolved]

NARRATIVE: CASE EVENT DATE: 20200101
